FAERS Safety Report 6090372-7 (Version None)
Quarter: 2009Q1

REPORT INFORMATION
  Report Type: 
  Country: None (occurrence: None)
  Receive Date: 20090220
  Receipt Date: 20090130
  Transmission Date: 20090719
  Serious: Yes (Hospitalization, Other)
  Sender: FDA-Public Use
  Company Number: GB-DEXPHARM-20090171

PATIENT
  Age: 32 Year
  Sex: Male

DRUGS (1)
  1. GERMOLENE CREAM [Suspect]
     Indication: OPEN WOUND
     Dates: start: 20080828

REACTIONS (4)
  - ILL-DEFINED DISORDER [None]
  - LOCALISED INFECTION [None]
  - OEDEMA PERIPHERAL [None]
  - OSTEONECROSIS [None]
